FAERS Safety Report 9258856 (Version 5)
Quarter: 2015Q2

REPORT INFORMATION
  Report Type: Spontaneous
  Country: US (occurrence: US)
  Receive Date: 20130426
  Receipt Date: 20150427
  Transmission Date: 20150821
  Serious: Yes (Other)
  Sender: FDA-Public Use
  Company Number: US-GLAXOSMITHKLINE-A1021373A

PATIENT
  Age: 54 Year
  Sex: Female

DRUGS (5)
  1. FLOLAN [Suspect]
     Active Substance: EPOPROSTENOL SODIUM
     Dosage: UNK
     Dates: start: 20041021
  2. REVATIO [Concomitant]
     Active Substance: SILDENAFIL CITRATE
  3. FLOLAN [Suspect]
     Active Substance: EPOPROSTENOL SODIUM
     Dosage: 30.5 NG/KG/MIN (CONCENTRATION 45,000, PUMP RATE 80 ML/DAY, VIAL STRENGTH 1.5 MG, CO
     Route: 042
  4. FLOLAN [Suspect]
     Active Substance: EPOPROSTENOL SODIUM
     Indication: PULMONARY HYPERTENSION
     Dosage: 28.5 NG/KG/MIN CONTINUOUSLY (45000 NG/ML CONCENTRATION, 75 ML/DAY PUMP RATE)29.5 NG/KG/MIN
     Route: 042
     Dates: start: 20041021
  5. COUMADIN [Concomitant]
     Active Substance: WARFARIN SODIUM

REACTIONS (4)
  - Medical device complication [Recovered/Resolved]
  - Central venous catheterisation [Recovered/Resolved]
  - Device related infection [Recovered/Resolved]
  - Nasopharyngitis [Not Recovered/Not Resolved]

NARRATIVE: CASE EVENT DATE: 20140307
